FAERS Safety Report 5413192-2 (Version None)
Quarter: 2007Q3

REPORT INFORMATION
  Report Type: 
  Country: None (occurrence: None)
  Receive Date: 20070814
  Receipt Date: 20070802
  Transmission Date: 20080115
  Serious: No
  Sender: FDA-Public Use
  Company Number: PHFR2007GB02326

PATIENT
  Age: 56 Year
  Sex: Male

DRUGS (1)
  1. CLOZARIL [Suspect]
     Indication: SCHIZOPHRENIA
     Route: 048
     Dates: start: 20050722

REACTIONS (5)
  - BLOOD GLUCOSE INCREASED [None]
  - ERECTILE DYSFUNCTION [None]
  - LOWER RESPIRATORY TRACT INFECTION [None]
  - SEDATION [None]
  - URINARY INCONTINENCE [None]
